FAERS Safety Report 11682652 (Version 5)
Quarter: 2016Q2

REPORT INFORMATION
  Report Type: Report from Study
  Country: JP (occurrence: JP)
  Receive Date: 20151029
  Receipt Date: 20160613
  Transmission Date: 20160815
  Serious: Yes (Hospitalization, Disabling)
  Sender: FDA-Public Use
  Company Number: JP-EISAI MEDICAL RESEARCH-EC-2015-011616

PATIENT
  Age: 66 Year
  Sex: Male
  Weight: 56 kg

DRUGS (16)
  1. LENVIMA [Suspect]
     Active Substance: LENVATINIB
     Dosage: WEEK 15
     Route: 048
     Dates: start: 201511, end: 201511
  2. LENVIMA [Suspect]
     Active Substance: LENVATINIB
     Dosage: WEEK 24
     Route: 048
     Dates: start: 201601
  3. ARCRANE [Concomitant]
  4. AZUNOL GARGLE [Concomitant]
  5. LENVIMA [Suspect]
     Active Substance: LENVATINIB
     Indication: ANAPLASTIC THYROID CANCER
     Route: 048
     Dates: start: 20150721, end: 20150804
  6. LENVIMA [Suspect]
     Active Substance: LENVATINIB
     Route: 048
     Dates: start: 20150809, end: 20151026
  7. LENVIMA [Suspect]
     Active Substance: LENVATINIB
     Dosage: WEEK 17
     Route: 048
     Dates: start: 201511, end: 201512
  8. ENSURE H [Concomitant]
  9. PACLITAXEL. [Concomitant]
     Active Substance: PACLITAXEL
  10. MAGMITT [Concomitant]
     Active Substance: MAGNESIUM OXIDE
  11. LENVIMA [Suspect]
     Active Substance: LENVATINIB
     Dosage: WEEK 20
     Route: 048
     Dates: start: 201512, end: 201601
  12. REBAMIPIDE [Concomitant]
     Active Substance: REBAMIPIDE
  13. POSTERISAN [Concomitant]
     Active Substance: LIDOCAINE
  14. CARBOPLATIN. [Concomitant]
     Active Substance: CARBOPLATIN
  15. AZILVA [Concomitant]
     Active Substance: AZILSARTAN KAMEDOXOMIL
  16. LOXOPROFEN [Concomitant]
     Active Substance: LOXOPROFEN

REACTIONS (4)
  - Anal ulcer [Recovering/Resolving]
  - Anal fissure [Recovering/Resolving]
  - Arterial haemorrhage [Recovering/Resolving]
  - Haemorrhoidal haemorrhage [Recovering/Resolving]

NARRATIVE: CASE EVENT DATE: 201510
